FAERS Safety Report 10290150 (Version 1)
Quarter: 2014Q3

REPORT INFORMATION
  Report Type: Report from Study
  Country: TN (occurrence: TN)
  Receive Date: 20140710
  Receipt Date: 20140710
  Transmission Date: 20150326
  Serious: Yes (Death)
  Sender: FDA-Public Use
  Company Number: TN-SA-2014SA087545

PATIENT
  Age: 71 Year
  Sex: Male

DRUGS (7)
  1. LASILIX [Concomitant]
     Active Substance: FUROSEMIDE
  2. SECTRAL [Concomitant]
     Active Substance: ACEBUTOLOL HYDROCHLORIDE
     Route: 048
  3. VASCOR [Concomitant]
     Active Substance: BEPRIDIL HYDROCHLORIDE
     Route: 048
  4. PLAVIX [Suspect]
     Active Substance: CLOPIDOGREL BISULFATE
     Indication: MYOCARDIAL INFARCTION
     Dosage: DOSE:75
     Route: 048
     Dates: start: 20131011
  5. SINTROM [Concomitant]
     Active Substance: ACENOCOUMAROL
     Route: 048
  6. OMEPRAZOLE. [Concomitant]
     Active Substance: OMEPRAZOLE
     Route: 048
  7. ASPEGIC [Concomitant]
     Active Substance: ASPIRIN DL-LYSINE
     Route: 048

REACTIONS (1)
  - Death [Fatal]
